FAERS Safety Report 20279514 (Version 3)
Quarter: 2022Q1

REPORT INFORMATION
  Report Type: Spontaneous
  Country: FR (occurrence: FR)
  Receive Date: 20220103
  Receipt Date: 20220222
  Transmission Date: 20220424
  Serious: Yes (Other)
  Sender: FDA-Public Use
  Company Number: FR-ASTELLAS-2021US050089

PATIENT
  Age: 69 Year
  Sex: Male

DRUGS (5)
  1. PROGRAF [Interacting]
     Active Substance: TACROLIMUS
     Indication: Heart transplant
     Dosage: 2.5 MG, TWICE DAILY (MORNING AND EVENING)
     Route: 048
  2. PROGRAF [Interacting]
     Active Substance: TACROLIMUS
     Dosage: UNK UNK, UNKNOWN FREQ.
     Route: 048
  3. ISAVUCONAZOLE [Interacting]
     Active Substance: ISAVUCONAZOLE
     Indication: Alternaria infection
     Dosage: 200 MG, THRICE DAILY (LOADING DOSE)
     Route: 048
  4. ISAVUCONAZOLE [Interacting]
     Active Substance: ISAVUCONAZOLE
     Route: 048
  5. MYCOPHENOLATE MOFETIL [Concomitant]
     Active Substance: MYCOPHENOLATE MOFETIL
     Indication: Heart transplant
     Route: 065

REACTIONS (7)
  - Sinus tachycardia [Recovered/Resolved]
  - Alternaria infection [Recovered/Resolved]
  - Acute kidney injury [Recovered/Resolved]
  - Tremor [Recovered/Resolved]
  - Diarrhoea [Recovered/Resolved]
  - Drug interaction [Unknown]
  - Off label use [Unknown]
